FAERS Safety Report 12218175 (Version 2)
Quarter: 2016Q2

REPORT INFORMATION
  Report Type: Spontaneous
  Country: US (occurrence: US)
  Receive Date: 20160329
  Receipt Date: 20160422
  Transmission Date: 20160815
  Serious: Yes (Life-Threatening, Hospitalization, Other)
  Sender: FDA-Public Use
  Company Number: US-MDT-ADR-2016-00514

PATIENT
  Age: 30 Year
  Sex: Male

DRUGS (2)
  1. ^LOTS OF MEDICATIONS^ [Suspect]
     Active Substance: UNSPECIFIED INGREDIENT
  2. LIORESAL [Suspect]
     Active Substance: BACLOFEN
     Indication: MUSCLE SPASTICITY
     Route: 037

REACTIONS (6)
  - Loss of consciousness [Unknown]
  - Syncope [Unknown]
  - Nephrolithiasis [Unknown]
  - Hypotonia [Unknown]
  - Unresponsive to stimuli [Unknown]
  - Hydronephrosis [Unknown]

NARRATIVE: CASE EVENT DATE: 201510
